FAERS Safety Report 6511475-6 (Version None)
Quarter: 2009Q4

REPORT INFORMATION
  Report Type: 
  Country: None (occurrence: None)
  Receive Date: 20091222
  Receipt Date: 20091214
  Transmission Date: 20100525
  Serious: Yes (Hospitalization, Other)
  Sender: FDA-Public Use
  Company Number: BR-ABBOTT-09P-020-0602851-00

PATIENT
  Sex: Female
  Weight: 73 kg

DRUGS (18)
  1. HUMIRA [Suspect]
     Indication: RHEUMATOID ARTHRITIS
     Route: 058
     Dates: start: 20090201, end: 20090701
  2. CYMBALTA [Concomitant]
     Indication: DEPRESSION
     Route: 048
     Dates: start: 20070101
  3. SERTRALINE HCL [Concomitant]
     Indication: DEPRESSION
     Route: 048
     Dates: start: 20060101
  4. ALPRAZOLAM [Concomitant]
     Indication: DEPRESSION
     Route: 048
     Dates: start: 20070101
  5. GABAPENTIN [Concomitant]
     Indication: PROPHYLAXIS
     Route: 048
     Dates: start: 20080801
  6. GABAPENTIN [Concomitant]
     Indication: BONE MARROW DISORDER
  7. NUCLEO C.M.P. [Concomitant]
     Indication: PROPHYLAXIS
     Route: 048
     Dates: start: 20080801
  8. CITONEURIN [Concomitant]
     Indication: SEDATIVE THERAPY
     Route: 048
     Dates: start: 20080801
  9. TRAMAL [Concomitant]
     Indication: PAIN
     Route: 048
     Dates: start: 20080801
  10. TRAMAL [Concomitant]
     Indication: TENSION
  11. BACLOFEN [Concomitant]
     Indication: PAIN
     Route: 048
     Dates: start: 20080801
  12. BACLOFEN [Concomitant]
     Indication: TENSION
     Route: 048
     Dates: start: 20090701
  13. BACLOFEN [Concomitant]
     Indication: RHEUMATOID ARTHRITIS
  14. HYGROTON [Concomitant]
     Indication: BLADDER DISORDER
     Route: 048
     Dates: start: 20080801
  15. HYGROTON [Concomitant]
     Indication: FLUID RETENTION
  16. OMEPRAZOLE [Concomitant]
     Indication: GASTRIC DISORDER
     Route: 048
  17. ISOCONAZOLE [Concomitant]
     Indication: FUNGAL INFECTION
  18. TRAMADOL HYDROCHLORIDE AND ACETAMINOPHEN [Concomitant]
     Indication: RHEUMATOID ARTHRITIS
     Dosage: 37.5MG/325MG
     Route: 048
     Dates: start: 20090701

REACTIONS (10)
  - ARTHRITIS BACTERIAL [None]
  - FUNGAL SKIN INFECTION [None]
  - HAEMATOMA [None]
  - INJECTION SITE ERYTHEMA [None]
  - INJECTION SITE PRURITUS [None]
  - INJECTION SITE WARMTH [None]
  - MENORRHAGIA [None]
  - NECROSIS [None]
  - STAPHYLOCOCCAL INFECTION [None]
  - UTERINE LEIOMYOMA [None]
